FAERS Safety Report 8508752-6 (Version None)
Quarter: 2012Q3

REPORT INFORMATION
  Report Type: 
  Country: None (occurrence: None)
  Receive Date: 20120713
  Receipt Date: 20120704
  Transmission Date: 20120928
  Serious: Yes (Hospitalization)
  Sender: FDA-Public Use
  Company Number: CA-JNJFOC-20120608738

PATIENT
  Sex: Male
  Weight: 58.97 kg

DRUGS (4)
  1. REMICADE [Suspect]
     Indication: CROHN'S DISEASE
     Route: 042
     Dates: start: 20120103
  2. HYDROMORPHONE HCL [Concomitant]
     Route: 065
  3. REMICADE [Suspect]
     Route: 042
     Dates: start: 20111101
  4. MORPHINE [Concomitant]
     Route: 065

REACTIONS (6)
  - CYSTITIS [None]
  - GASTROINTESTINAL FISTULA [None]
  - INTESTINAL RESECTION [None]
  - ABDOMINAL PAIN UPPER [None]
  - VESICAL FISTULA [None]
  - ABDOMINAL ABSCESS [None]
